FAERS Safety Report 9414037 (Version 2)
Quarter: 2013Q3

REPORT INFORMATION
  Report Type: Spontaneous
  Country: US (occurrence: US)
  Receive Date: 20130723
  Receipt Date: 20130807
  Transmission Date: 20140515
  Serious: No
  Sender: FDA-Public Use
  Company Number: US-009507513-1307USA012618

PATIENT
  Age: 41 Year
  Sex: Female
  Weight: 81.63 kg

DRUGS (6)
  1. CLARITIN [Suspect]
     Indication: HOUSE DUST ALLERGY
     Dosage: 10 MG, BID
     Route: 048
     Dates: start: 20130510, end: 20130630
  2. CLARITIN [Suspect]
     Indication: SEASONAL ALLERGY
  3. CLARITIN [Suspect]
     Indication: ALLERGY TO ANIMAL
  4. CLARITIN [Suspect]
     Indication: MEDICAL OBSERVATION
  5. METFORMIN [Concomitant]
     Indication: DIABETES MELLITUS
     Dosage: 500 MG, BID
  6. IRON (UNSPECIFIED) [Concomitant]
     Indication: PRODUCT USED FOR UNKNOWN INDICATION
     Dosage: 325 MG, BID

REACTIONS (5)
  - Rhinorrhoea [Unknown]
  - Lacrimation increased [Unknown]
  - Unevaluable event [Unknown]
  - Drug ineffective [Unknown]
  - Overdose [Unknown]
